FAERS Safety Report 7272462-6 (Version None)
Quarter: 2011Q1

REPORT INFORMATION
  Report Type: 
  Country: None (occurrence: None)
  Receive Date: 20110203
  Receipt Date: 20110126
  Transmission Date: 20110831
  Serious: Yes (Hospitalization, Other)
  Sender: FDA-Public Use
  Company Number: US-ROCHE-707644

PATIENT
  Sex: Female

DRUGS (4)
  1. RIBAVIRIN [Suspect]
     Dosage: RESTARTED
     Route: 048
     Dates: start: 20101030
  2. RIBAVIRIN [Suspect]
     Indication: HEPATITIS C
     Dosage: DIVIDED DOSES.
     Route: 048
     Dates: start: 20100414, end: 20100812
  3. PEGINTERFERON ALFA-2A [Suspect]
     Dosage: RESTARTED
     Route: 058
     Dates: start: 20101030
  4. PEGINTERFERON ALFA-2A [Suspect]
     Indication: HEPATITIS C
     Dosage: FORM:PRE FILLED SYRINGE.
     Route: 058
     Dates: start: 20100414, end: 20100812

REACTIONS (14)
  - FATIGUE [None]
  - FEELING ABNORMAL [None]
  - ALOPECIA [None]
  - DEHYDRATION [None]
  - NAUSEA [None]
  - PSORIASIS [None]
  - SKIN BURNING SENSATION [None]
  - INJECTION SITE RASH [None]
  - CONFUSIONAL STATE [None]
  - INFECTION [None]
  - FRUSTRATION [None]
  - BRAIN NEOPLASM [None]
  - ANAEMIA [None]
  - MALAISE [None]
